FAERS Safety Report 6973888-8 (Version None)
Quarter: 2010Q3

REPORT INFORMATION
  Report Type: 
  Country: None (occurrence: None)
  Receive Date: 20100909
  Receipt Date: 20100908
  Transmission Date: 20110219
  Serious: Yes (Hospitalization)
  Sender: FDA-Public Use
  Company Number: D0068603A

PATIENT
  Sex: Female
  Weight: 75 kg

DRUGS (2)
  1. TYVERB [Suspect]
     Indication: BREAST CANCER
     Dosage: 1000MG PER DAY
     Route: 048
     Dates: start: 20100429, end: 20100730
  2. DEXAMETHASONE TAB [Suspect]
     Indication: VOMITING
     Route: 065
     Dates: start: 20100722

REACTIONS (1)
  - PSYCHOTIC DISORDER [None]
